FAERS Safety Report 21756245 (Version 1)
Quarter: 2022Q4

REPORT INFORMATION
  Report Type: Spontaneous
  Country: US (occurrence: US)
  Receive Date: 20221220
  Receipt Date: 20221220
  Transmission Date: 20230112
  Serious: No
  Sender: FDA-Public Use
  Company Number: US-CARA THERAPEUTICS, INC.-2022-00054-US

PATIENT

DRUGS (31)
  1. KORSUVA [Suspect]
     Active Substance: DIFELIKEFALIN ACETATE
     Indication: Pruritus
     Dosage: 50 MICROGRAM, TIW
     Route: 042
     Dates: start: 20220606, end: 20220606
  2. KORSUVA [Suspect]
     Active Substance: DIFELIKEFALIN ACETATE
     Indication: Chronic kidney disease
  3. ALBUTEROL SULFATE [Concomitant]
     Active Substance: ALBUTEROL SULFATE
     Indication: Wheezing
     Dosage: 2 PUFFS EVERY 6 HOURS
     Dates: start: 20211015
  4. APIXABAN [Concomitant]
     Active Substance: APIXABAN
     Indication: Product used for unknown indication
     Dosage: 5 MG Q 12H
     Dates: start: 20220225
  5. ASPIRIN [Concomitant]
     Active Substance: ASPIRIN
     Indication: Antiplatelet therapy
     Dosage: 81 MG QD
     Dates: start: 20211015
  6. AURYXIA [Concomitant]
     Active Substance: TETRAFERRIC TRICITRATE DECAHYDRATE
     Indication: Blood phosphorus
     Dosage: UNKNOWN DOSAGE; 2 TABS DAILY
     Dates: start: 20220316
  7. CARVEDILOL [Concomitant]
     Active Substance: CARVEDILOL
     Indication: Hypertension
     Dosage: 6.25 MG 1 TAB TWICE A DAY
     Dates: start: 20220225
  8. CLOPIDOGREL [Concomitant]
     Active Substance: CLOPIDOGREL BISULFATE
     Indication: Antiplatelet therapy
     Dosage: 75 MG 1 TAB ONCE A DAY
     Dates: start: 20211015
  9. FLUCINONIDE [Concomitant]
     Indication: Pruritus
     Dosage: UNKNOWN; TWICE A DAY
     Route: 061
     Dates: start: 20220225
  10. FLUTICASONE [Concomitant]
     Active Substance: FLUTICASONE
     Indication: Hypersensitivity
     Dosage: 50 MCG/SPRAY; 1 SPRAY IN EACH NOSTRIL DAILY
     Route: 045
  11. GABAPENTIN [Concomitant]
     Active Substance: GABAPENTIN
     Indication: Neuropathy peripheral
     Dosage: 1 CAP IN THE MORNING AND 2 AT BEDTIME
     Dates: start: 202005
  12. ISOSORBIDE MONONITRATE [Concomitant]
     Active Substance: ISOSORBIDE MONONITRATE
     Indication: Prophylaxis
     Dosage: 60 MILLIGRAM, QD IN THE MORNING
     Dates: start: 202202
  13. ISOSORBIDE MONONITRATE [Concomitant]
     Active Substance: ISOSORBIDE MONONITRATE
     Indication: Chest pain
  14. LOSARTAN [Concomitant]
     Active Substance: LOSARTAN
     Indication: Hypertension
     Dosage: 25 MILLIGRAM, QD
     Dates: start: 202202
  15. METOPROLOL [Concomitant]
     Active Substance: METOPROLOL
     Indication: Hypertension
     Dosage: 50 MILLIGRAM, BID
     Dates: start: 202110
  16. MIDODRINE [Concomitant]
     Active Substance: MIDODRINE
     Indication: Hypotension
     Dosage: 10 MILLIGRAM, PRN BEFORE DIALYSIS
     Dates: start: 202202
  17. MUPIROCIN [Concomitant]
     Active Substance: MUPIROCIN
     Indication: Wound
     Dosage: UNKNOWN
     Dates: start: 202002
  18. NITROGLYCERIN [Concomitant]
     Active Substance: NITROGLYCERIN
     Indication: Chest pain
     Dosage: 0.4 MILLIGRAM EVERY 5 MINUTES
     Dates: start: 202202
  19. NORTRIPTYLINE [Concomitant]
     Active Substance: NORTRIPTYLINE
     Indication: Neuralgia
     Dosage: 25 MILLIGRAM, BID
     Dates: start: 20220225
  20. NOVOLIN R [Concomitant]
     Active Substance: INSULIN HUMAN
     Indication: Diabetes mellitus
     Dosage: SLIDING SCALE
     Dates: start: 202002
  21. VITAMIN D3 [Concomitant]
     Active Substance: CHOLECALCIFEROL
     Indication: Vitamin D deficiency
     Dosage: UNKNOWN
     Dates: start: 202104
  22. INSULIN GLARGINE [Concomitant]
     Active Substance: INSULIN GLARGINE
     Indication: Diabetes mellitus
     Dosage: SLIDING SCALE
     Dates: start: 202110
  23. DICLOFENAC [Concomitant]
     Active Substance: DICLOFENAC
     Indication: Product used for unknown indication
     Dosage: APPLY LOCATION UP TO 4 TIMES DAILY
     Route: 061
     Dates: start: 202110
  24. PANTOPRAZOLE [Concomitant]
     Active Substance: PANTOPRAZOLE
     Indication: Gastrooesophageal reflux disease
     Dosage: 40 MILLIGRAM, BID
     Dates: start: 202111
  25. ASCORBIC ACID\BIOTIN\CALCIUM PANTOTHENATE\CYANOCOBALAMIN\FOLIC ACID\NI [Concomitant]
     Active Substance: ASCORBIC ACID\BIOTIN\CALCIUM PANTOTHENATE\CYANOCOBALAMIN\FOLIC ACID\NIACINAMIDE\PYRIDOXINE HYDROCHLO
     Indication: Supplementation therapy
     Dosage: 1 TABLET QD
     Dates: start: 202002
  26. TRIAMCINOLONE ACETONIDE [Concomitant]
     Active Substance: TRIAMCINOLONE ACETONIDE
     Indication: Product used for unknown indication
     Dosage: APPLY ON THE AFFECTED AREA
     Dates: start: 202002
  27. EPOGEN [Concomitant]
     Active Substance: ERYTHROPOIETIN
     Indication: Anaemia
     Dosage: UNK, TIW
     Dates: start: 202205, end: 20220606
  28. HECTOROL [Concomitant]
     Active Substance: DOXERCALCIFEROL
     Indication: Hyperparathyroidism
     Dosage: UNK, TIW
     Dates: start: 202205, end: 20220606
  29. VENOFER [Concomitant]
     Active Substance: IRON SUCROSE
     Indication: Iron deficiency
     Dosage: UNK, QWK
     Dates: start: 202205, end: 20220601
  30. SODIUM BISULFATE [Concomitant]
     Indication: Calciphylaxis
     Dosage: UNK, TIW
     Dates: start: 202203, end: 20220606
  31. SODIUM THIOSULFATE [Concomitant]
     Active Substance: SODIUM THIOSULFATE

REACTIONS (3)
  - Feeling hot [Recovering/Resolving]
  - Dyspnoea [Recovering/Resolving]
  - Anxiety [Recovering/Resolving]

NARRATIVE: CASE EVENT DATE: 20220606
